FAERS Safety Report 7786953-2 (Version None)
Quarter: 2011Q3

REPORT INFORMATION
  Report Type: 
  Country: None (occurrence: None)
  Receive Date: 20110928
  Receipt Date: 20110928
  Transmission Date: 20111222
  Serious: No
  Sender: FDA-Public Use
  Company Number: None

PATIENT
  Age: 50 Year
  Sex: Male
  Weight: 130.8 kg

DRUGS (1)
  1. LISINOPRIL [Suspect]
     Indication: HYPERTENSION
     Dosage: 10 MG EVERY DAY PO
     Route: 048
     Dates: start: 20110427, end: 20110428

REACTIONS (4)
  - SMALL BOWEL ANGIOEDEMA [None]
  - VASOCONSTRICTION [None]
  - ASCITES [None]
  - INFLAMMATORY BOWEL DISEASE [None]
